FAERS Safety Report 7211003-6 (Version None)
Quarter: 2011Q1

REPORT INFORMATION
  Report Type: 
  Country: None (occurrence: None)
  Receive Date: 20110105
  Receipt Date: 20101227
  Transmission Date: 20110831
  Serious: Yes (Other)
  Sender: FDA-Public Use
  Company Number: B0691294A

PATIENT

DRUGS (1)
  1. PAXIL [Suspect]
     Route: 048

REACTIONS (6)
  - MUSCLE RIGIDITY [None]
  - IRRITABILITY [None]
  - HYPERHIDROSIS [None]
  - SEROTONIN SYNDROME [None]
  - TREMOR [None]
  - MYOCLONUS [None]
